APPROVED DRUG PRODUCT: GABAPENTIN
Active Ingredient: GABAPENTIN
Strength: 600MG
Dosage Form/Route: TABLET;ORAL
Application: A209855 | Product #001
Applicant: IPCA LABORATORIES LTD
Approved: May 29, 2024 | RLD: No | RS: No | Type: DISCN